FAERS Safety Report 4772731-5 (Version None)
Quarter: 2005Q3

REPORT INFORMATION
  Report Type: 
  Country: None (occurrence: None)
  Receive Date: 20050919
  Receipt Date: 20050908
  Transmission Date: 20060218
  Serious: Yes (Other)
  Sender: FDA-Public Use
  Company Number: JP-ROCHE-417258

PATIENT
  Age: 75 Year
  Sex: Male

DRUGS (2)
  1. PEGASYS [Suspect]
     Route: 058
     Dates: start: 20050515, end: 20050815
  2. URSODIOL [Concomitant]
     Dosage: ORAL FORMULATION.
     Route: 048

REACTIONS (2)
  - DEMENTIA [None]
  - DYSPHAGIA [None]
